FAERS Safety Report 9802372 (Version 1)
Quarter: 2014Q1

REPORT INFORMATION
  Report Type: Spontaneous
  Country: US (occurrence: US)
  Receive Date: 20140107
  Receipt Date: 20140107
  Transmission Date: 20141002
  Serious: Yes (Hospitalization, Other)
  Sender: FDA-Public Use
  Company Number: US-ABBVIE-14P-163-1186670-00

PATIENT
  Age: 25 Year
  Sex: Female
  Weight: 66.74 kg

DRUGS (4)
  1. HUMIRA [Suspect]
     Indication: CROHN^S DISEASE
     Route: 058
     Dates: start: 201308
  2. PRENATAL VITAMINS [Concomitant]
     Indication: PREGNANCY
  3. IMODIUM [Concomitant]
     Indication: CROHN^S DISEASE
  4. IRON [Concomitant]
     Indication: ANAEMIA
     Route: 042

REACTIONS (5)
  - Ectopic pregnancy [Unknown]
  - Thrombosis [Recovered/Resolved]
  - Abdominal pain lower [Recovered/Resolved]
  - Nausea [Not Recovered/Not Resolved]
  - Vomiting [Not Recovered/Not Resolved]
